FAERS Safety Report 10207710 (Version 1)
Quarter: 2014Q2

REPORT INFORMATION
  Report Type: Spontaneous
  Country: US (occurrence: None)
  Receive Date: 20140529
  Receipt Date: 20140529
  Transmission Date: 20141212
  Serious: Yes (Disabling)
  Sender: FDA-Public Use
  Company Number: None

PATIENT
  Age: 69 Week
  Sex: Female
  Weight: 67.13 kg

DRUGS (1)
  1. CELESTONE [Suspect]
     Indication: TRIGGER FINGER
     Dosage: ONCE INJECTED ON 3/21/14, ONE TIME INJECTION, ONE TIME, INJECTION AT BASE OF MIDDLE TRIGGER FIND

REACTIONS (2)
  - Neuropathy peripheral [None]
  - Paraesthesia [None]
